FAERS Safety Report 19250243 (Version 1)
Quarter: 2021Q2

REPORT INFORMATION
  Report Type: Spontaneous
  Country: DE (occurrence: DE)
  Receive Date: 20210513
  Receipt Date: 20210513
  Transmission Date: 20210717
  Serious: Yes (Other)
  Sender: FDA-Public Use
  Company Number: DE-SUN PHARMACEUTICAL INDUSTRIES LTD-2021RR-296204

PATIENT
  Age: 4 Year
  Sex: Female

DRUGS (21)
  1. IRINOTECAN [Suspect]
     Active Substance: IRINOTECAN
     Indication: PRODUCT USED FOR UNKNOWN INDICATION
     Dosage: UNK
     Route: 065
  2. DASATINIB. [Suspect]
     Active Substance: DASATINIB
     Indication: PRODUCT USED FOR UNKNOWN INDICATION
     Dosage: UNK
     Route: 065
     Dates: start: 2017
  3. SIRIOLIMUS [Suspect]
     Active Substance: SIROLIMUS
     Indication: PRODUCT USED FOR UNKNOWN INDICATION
     Dosage: UNK
     Route: 065
     Dates: start: 2017
  4. VINCRISTINE [Suspect]
     Active Substance: VINCRISTINE
     Indication: NEUROBLASTOMA
     Dosage: UNK
     Route: 065
  5. ETOPOSIDE. [Suspect]
     Active Substance: ETOPOSIDE
     Indication: NEUROBLASTOMA
     Dosage: UNK
     Route: 065
  6. MELPHALAN. [Suspect]
     Active Substance: MELPHALAN
     Indication: NEUROBLASTOMA
     Dosage: UNK
     Route: 065
  7. CISPLATIN. [Suspect]
     Active Substance: CISPLATIN
     Indication: NEUROBLASTOMA
     Dosage: UNK
     Route: 065
  8. DOXORUBICIN [Suspect]
     Active Substance: DOXORUBICIN
     Indication: NEUROBLASTOMA
     Route: 065
  9. NIVOLUMAB [Suspect]
     Active Substance: NIVOLUMAB
     Indication: PRODUCT USED FOR UNKNOWN INDICATION
     Dosage: 3 MG/KG BODY WEIGHT, EVERY 2 WEEKS
     Route: 065
     Dates: start: 201810, end: 201908
  10. IRINOTECAN [Suspect]
     Active Substance: IRINOTECAN
     Dosage: UNK
     Route: 065
  11. CARBOPLATIN. [Suspect]
     Active Substance: CARBOPLATIN
     Indication: NEUROBLASTOMA
     Dosage: UNK
     Route: 065
  12. DINUTUXIMAB BETA [Suspect]
     Active Substance: DINUTUXIMAB BETA
     Dosage: 8 COURSES (100 MG/M^2 BODY SURFACE AREA IN 10 DAYS EVERY 6 WEEKS)
     Route: 065
     Dates: start: 201810, end: 201908
  13. CYCLOPHOSPHAMIDE. [Suspect]
     Active Substance: CYCLOPHOSPHAMIDE
     Dosage: UNK
     Route: 065
     Dates: start: 2017
  14. BUSULFAN. [Suspect]
     Active Substance: BUSULFAN
     Indication: NEUROBLASTOMA
     Dosage: UNK
     Route: 065
  15. DINUTUXIMAB BETA [Suspect]
     Active Substance: DINUTUXIMAB BETA
     Indication: PRODUCT USED FOR UNKNOWN INDICATION
     Dosage: UNK
     Route: 065
     Dates: start: 201712
  16. INTERLEUKIN 2 [Suspect]
     Active Substance: ALDESLEUKIN
     Indication: NEUROBLASTOMA
     Dosage: UNK
     Route: 065
  17. TEMOZOLOMIDE. [Suspect]
     Active Substance: TEMOZOLOMIDE
     Dosage: UNK
     Route: 065
     Dates: start: 201809
  18. TOPOTECAN [Suspect]
     Active Substance: TOPOTECAN HYDROCHLORIDE
     Indication: NEUROBLASTOMA
     Dosage: UNK
     Route: 065
  19. THIOTHEPA [Suspect]
     Active Substance: THIOTEPA
     Indication: PRODUCT USED FOR UNKNOWN INDICATION
     Dosage: UNK
     Route: 065
     Dates: start: 2017
  20. TEMOZOLOMIDE. [Suspect]
     Active Substance: TEMOZOLOMIDE
     Indication: PRODUCT USED FOR UNKNOWN INDICATION
     Dosage: UNK
     Route: 065
     Dates: start: 2017
  21. CYCLOPHOSPHAMIDE. [Suspect]
     Active Substance: CYCLOPHOSPHAMIDE
     Indication: NEUROBLASTOMA
     Dosage: UNK
     Route: 065

REACTIONS (3)
  - Disease recurrence [Unknown]
  - Disease progression [Unknown]
  - Therapeutic product effect incomplete [Unknown]

NARRATIVE: CASE EVENT DATE: 201701
